FAERS Safety Report 14079083 (Version 1)
Quarter: 2017Q4

REPORT INFORMATION
  Report Type: Spontaneous
  Country: JP (occurrence: JP)
  Receive Date: 20171012
  Receipt Date: 20171012
  Transmission Date: 20180321
  Serious: Yes (Death, Hospitalization)
  Sender: FDA-Public Use
  Company Number: JP-ELI_LILLY_AND_COMPANY-JP201710003109

PATIENT
  Age: 65 Year
  Sex: Male

DRUGS (9)
  1. PITAVASTATIN. [Concomitant]
     Active Substance: PITAVASTATIN CALCIUM
     Dosage: 2 MG, UNKNOWN
     Route: 048
  2. INSULIN GLARGINE [Suspect]
     Active Substance: INSULIN GLARGINE
     Indication: TYPE 2 DIABETES MELLITUS
     Dosage: UNK, UNKNOWN
     Route: 058
     Dates: start: 201705
  3. OLOPATADINE. [Concomitant]
     Active Substance: OLOPATADINE
     Dosage: 10 MG, UNKNOWN
     Route: 048
  4. OLMESARTAN [Concomitant]
     Active Substance: OLMESARTAN
     Dosage: 40 MG, UNKNOWN
     Route: 048
  5. CARVEDILOL. [Concomitant]
     Active Substance: CARVEDILOL
     Dosage: 10 MG, UNKNOWN
     Route: 048
  6. SITAGLIPTIN [Concomitant]
     Active Substance: SITAGLIPTIN
     Dosage: 50 MG, DAILY
     Route: 048
  7. METFORMIN [Concomitant]
     Active Substance: METFORMIN HYDROCHLORIDE
     Dosage: 1500 MG, DAILY
     Route: 048
  8. DEXCHLORPHENIRAMINE [Concomitant]
     Active Substance: DEXCHLORPHENIRAMINE
     Dosage: 2 MG, UNKNOWN
     Route: 048
  9. AMLODIPINE [Concomitant]
     Active Substance: AMLODIPINE BESYLATE
     Dosage: 5 MG, DAILY
     Route: 048

REACTIONS (2)
  - Hypercalcaemia [Fatal]
  - Lymphoma [Fatal]

NARRATIVE: CASE EVENT DATE: 2017
